FAERS Safety Report 9079043 (Version 4)
Quarter: 2013Q2

REPORT INFORMATION
  Report Type: Report from Study
  Country: CA (occurrence: CA)
  Receive Date: 20130130
  Receipt Date: 20130613
  Transmission Date: 20140414
  Serious: Yes (Death, Other)
  Sender: FDA-Public Use
  Company Number: CA-ROCHE-1183670

PATIENT
  Sex: Male
  Weight: 74.4 kg

DRUGS (6)
  1. AVASTIN [Suspect]
     Indication: GLIOBLASTOMA
     Route: 042
     Dates: start: 20121016, end: 20130108
  2. DILANTIN [Concomitant]
  3. ATIVAN [Concomitant]
  4. TYLENOL [Concomitant]
     Route: 048
     Dates: start: 20121016, end: 20130108
  5. BENADRYL [Concomitant]
     Route: 048
     Dates: start: 20121016, end: 20130108
  6. SOLU-MEDROL [Concomitant]
     Route: 042
     Dates: start: 20121016, end: 20130108

REACTIONS (2)
  - Neoplasm [Unknown]
  - Disease progression [Fatal]
